FAERS Safety Report 7300416-X (Version None)
Quarter: 2011Q1

REPORT INFORMATION
  Report Type: 
  Country: None (occurrence: None)
  Receive Date: 20110217
  Receipt Date: 20110211
  Transmission Date: 20110831
  Serious: Yes (Death, Hospitalization)
  Sender: FDA-Public Use
  Company Number: PHHO2010DE16478

PATIENT
  Sex: Male
  Weight: 85 kg

DRUGS (2)
  1. AVASTIN [Suspect]
     Indication: HEPATIC CANCER METASTATIC
     Dosage: 2.5 MG, UNK
     Dates: start: 20100806
  2. AFINITOR [Suspect]
     Indication: HEPATIC CANCER METASTATIC
     Dosage: 2.5 MG, UNK
     Route: 048
     Dates: start: 20100806, end: 20101025

REACTIONS (4)
  - DUODENAL ULCER [None]
  - MULTI-ORGAN FAILURE [None]
  - HEPATIC ENCEPHALOPATHY [None]
  - DUODENAL ULCER HAEMORRHAGE [None]
